FAERS Safety Report 10014746 (Version 1)
Quarter: 2014Q1

REPORT INFORMATION
  Report Type: Spontaneous
  Country: US (occurrence: US)
  Receive Date: 20140317
  Receipt Date: 20140317
  Transmission Date: 20141002
  Serious: Yes (Other)
  Sender: FDA-Public Use
  Company Number: US-ABBVIE-14P-163-1210524-00

PATIENT
  Age: 47 Year
  Sex: Male
  Weight: 115.32 kg

DRUGS (6)
  1. ANDROGEL [Suspect]
     Indication: BLOOD TESTOSTERONE DECREASED
     Dosage: 4 PUMPS A DAY
     Route: 061
     Dates: start: 2013, end: 201307
  2. ANDROGEL [Suspect]
     Route: 061
     Dates: end: 2013
  3. ANDROGEL [Suspect]
     Route: 061
     Dates: start: 201209
  4. ADDERALL [Suspect]
     Indication: ATTENTION DEFICIT/HYPERACTIVITY DISORDER
  5. PSEUDOEPHEDRINE [Suspect]
     Indication: CHRONIC SINUSITIS
     Dates: end: 2013
  6. ZOLOFT [Concomitant]
     Indication: PRODUCT USED FOR UNKNOWN INDICATION

REACTIONS (5)
  - Cardiac murmur [Not Recovered/Not Resolved]
  - Mitral valve prolapse [Recovered/Resolved]
  - Pituitary tumour [Recovering/Resolving]
  - Hyperprolactinaemia [Recovered/Resolved]
  - Blood testosterone decreased [Unknown]
